FAERS Safety Report 10251579 (Version 1)
Quarter: 2014Q2

REPORT INFORMATION
  Report Type: Spontaneous
  Country: DE (occurrence: DE)
  Receive Date: 20140623
  Receipt Date: 20140623
  Transmission Date: 20141212
  Serious: Yes (Other)
  Sender: FDA-Public Use
  Company Number: GXKR2014DE002331

PATIENT
  Sex: 0

DRUGS (2)
  1. MONTELUKAST SODIUM [Suspect]
     Indication: ASTHMA
     Route: 048
     Dates: start: 20131210, end: 20131212
  2. SYMBICORT [Concomitant]
     Indication: ASTHMA
     Dosage: DAILY DOSE: 320 ?G MICROGRAM(S) EVERY 2 DAYS
     Route: 055

REACTIONS (4)
  - Acute psychosis [Recovered/Resolved]
  - Sleep disorder [Recovered/Resolved]
  - Insomnia [Recovered/Resolved]
  - Suicidal ideation [Recovered/Resolved]
